FAERS Safety Report 5832200-8 (Version None)
Quarter: 2008Q3

REPORT INFORMATION
  Report Type: 
  Country: None (occurrence: None)
  Receive Date: 20080730
  Receipt Date: 20080722
  Transmission Date: 20090109
  Serious: Yes (Life-Threatening)
  Sender: FDA-Public Use
  Company Number: TOR 2008-0024

PATIENT
  Age: 66 Year
  Sex: Female

DRUGS (5)
  1. FARESTON [Suspect]
     Indication: BREAST CANCER STAGE III
     Dosage: 120 MG, ORAL
     Route: 048
     Dates: start: 20080414, end: 20080601
  2. FAMOTIDINE [Concomitant]
  3. MOSAPRAMINE [Concomitant]
  4. LEVOTHYROXINE SODIUM [Concomitant]
  5. SENNA LEAF/POD [Concomitant]

REACTIONS (3)
  - DYSPHONIA [None]
  - INTERSTITIAL LUNG DISEASE [None]
  - NASOPHARYNGITIS [None]
